FAERS Safety Report 11682072 (Version 1)
Quarter: 2015Q4

REPORT INFORMATION
  Report Type: Spontaneous
  Country: US (occurrence: US)
  Receive Date: 20151029
  Receipt Date: 20151029
  Transmission Date: 20160304
  Serious: Yes (Hospitalization)
  Sender: FDA-Public Use
  Company Number: US-BRACCO-012796

PATIENT
  Age: 53 Year
  Sex: Female
  Weight: 56 kg

DRUGS (1)
  1. BARIUM SULFATE [Suspect]
     Active Substance: BARIUM SULFATE
     Indication: DIAGNOSTIC PROCEDURE
     Dosage: VIA NASOGASTRIC TUBE
     Dates: start: 201205, end: 201205

REACTIONS (3)
  - Abdominal distension [Recovered/Resolved]
  - Abdominal discomfort [Recovered/Resolved]
  - Abdominal pain [Recovered/Resolved]

NARRATIVE: CASE EVENT DATE: 201205
